FAERS Safety Report 11616036 (Version 4)
Quarter: 2015Q4

REPORT INFORMATION
  Report Type: Spontaneous
  Country: JP (occurrence: JP)
  Receive Date: 20151009
  Receipt Date: 20151228
  Transmission Date: 20160304
  Serious: Yes (Death, Hospitalization)
  Sender: FDA-Public Use
  Company Number: JP-B.I. PHARMACEUTICALS,INC./RIDGEFIELD-2015-BI-55436NB

PATIENT
  Age: 64 Year
  Sex: Male
  Weight: 56.9 kg

DRUGS (5)
  1. PROGRAF [Concomitant]
     Active Substance: TACROLIMUS\TACROLIMUS ANHYDROUS
     Indication: IDIOPATHIC PULMONARY FIBROSIS
     Dosage: 4 MG
     Route: 048
     Dates: start: 20150304, end: 20151006
  2. BACTRAMIN [Concomitant]
     Active Substance: SULFAMETHOXAZOLE\TRIMETHOPRIM
     Indication: IDIOPATHIC PULMONARY FIBROSIS
     Dosage: 1.5 ANZ
     Route: 048
     Dates: start: 20150318, end: 20151006
  3. LIXIANA [Concomitant]
     Active Substance: EDOXABAN TOSILATE MONOHYDRATE
     Indication: ATRIAL FIBRILLATION
     Dosage: 30 MG
     Route: 048
     Dates: start: 20150316, end: 20151006
  4. OFEV [Suspect]
     Active Substance: NINTEDANIB
     Indication: IDIOPATHIC PULMONARY FIBROSIS
     Dosage: 300 MG
     Route: 048
     Dates: start: 20150915, end: 20151006
  5. PREDONINE [Concomitant]
     Active Substance: PREDNISOLONE\PREDNISOLONE ACETATE\PREDNISOLONE SODIUM SUCCINATE
     Indication: IDIOPATHIC PULMONARY FIBROSIS
     Dosage: 10 MG
     Route: 048
     Dates: start: 20150321, end: 20151006

REACTIONS (2)
  - Multi-organ failure [Fatal]
  - Idiopathic pulmonary fibrosis [Fatal]

NARRATIVE: CASE EVENT DATE: 20151006
